FAERS Safety Report 12303080 (Version 3)
Quarter: 2017Q2

REPORT INFORMATION
  Report Type: Spontaneous
  Country: US (occurrence: US)
  Receive Date: 20160426
  Receipt Date: 20170501
  Transmission Date: 20170830
  Serious: Yes (Other)
  Sender: FDA-Public Use
  Company Number: US-JNJFOC-20150927780

PATIENT
  Age: 8 Year
  Sex: Male

DRUGS (48)
  1. RISPERDAL [Suspect]
     Active Substance: RISPERIDONE
     Indication: IMPULSIVE BEHAVIOUR
     Dosage: 0.25 MG - 1 MG
     Route: 048
     Dates: start: 20020528, end: 20021212
  2. RISPERDAL [Suspect]
     Active Substance: RISPERIDONE
     Indication: AFFECTIVE DISORDER
     Dosage: 0.25 MG - 1 MG
     Route: 048
     Dates: start: 20030208
  3. RISPERDAL [Suspect]
     Active Substance: RISPERIDONE
     Indication: AGGRESSION
     Dosage: 0.25 MG - 1 MG
     Route: 048
     Dates: start: 20050128, end: 20080915
  4. RISPERDAL [Suspect]
     Active Substance: RISPERIDONE
     Indication: AFFECTIVE DISORDER
     Dosage: 0.25 MG - 1 MG
     Route: 048
     Dates: start: 20050128, end: 20080915
  5. RISPERDAL [Suspect]
     Active Substance: RISPERIDONE
     Indication: GENERALISED ANXIETY DISORDER
     Dosage: 0.25 MG - 1 MG
     Route: 048
     Dates: start: 200205, end: 200809
  6. RISPERDAL [Suspect]
     Active Substance: RISPERIDONE
     Indication: PSYCHOMOTOR HYPERACTIVITY
     Dosage: 0.25 MG - 1 MG
     Route: 048
     Dates: start: 20020528, end: 20021212
  7. RISPERDAL [Suspect]
     Active Substance: RISPERIDONE
     Indication: PSYCHOMOTOR HYPERACTIVITY
     Dosage: 0.25 MG - 1 MG
     Route: 048
     Dates: start: 200205, end: 200809
  8. RISPERDAL [Suspect]
     Active Substance: RISPERIDONE
     Indication: PSYCHOMOTOR HYPERACTIVITY
     Dosage: 0.25 MG - 1 MG
     Route: 048
     Dates: start: 20040905, end: 20050128
  9. RISPERDAL [Suspect]
     Active Substance: RISPERIDONE
     Indication: AGGRESSION
     Dosage: 0.25 MG - 1 MG
     Route: 048
     Dates: start: 20040905, end: 20050128
  10. RISPERDAL [Suspect]
     Active Substance: RISPERIDONE
     Indication: IMPULSIVE BEHAVIOUR
     Dosage: 0.25 MG - 1 MG
     Route: 048
     Dates: start: 20050128, end: 20080915
  11. RISPERDAL [Suspect]
     Active Substance: RISPERIDONE
     Indication: AFFECTIVE DISORDER
     Dosage: 0.25 MG - 1 MG
     Route: 048
     Dates: start: 20040905, end: 20050128
  12. RISPERDAL [Suspect]
     Active Substance: RISPERIDONE
     Indication: GENERALISED ANXIETY DISORDER
     Dosage: 0.25 MG - 1 MG
     Route: 048
     Dates: start: 20020528, end: 20021212
  13. RISPERDAL [Suspect]
     Active Substance: RISPERIDONE
     Indication: GENERALISED ANXIETY DISORDER
     Dosage: 0.25 MG - 1 MG
     Route: 048
     Dates: start: 20040905, end: 20050128
  14. RISPERDAL [Suspect]
     Active Substance: RISPERIDONE
     Indication: PSYCHOMOTOR HYPERACTIVITY
     Dosage: 0.25 MG - 1 MG
     Route: 048
     Dates: start: 20050128, end: 20080915
  15. RISPERDAL [Suspect]
     Active Substance: RISPERIDONE
     Indication: BIPOLAR DISORDER
     Dosage: 0.25 MG - 1 MG
     Route: 048
     Dates: start: 20050128, end: 20080915
  16. INVEGA [Suspect]
     Active Substance: PALIPERIDONE
     Indication: GENERALISED ANXIETY DISORDER
     Route: 048
     Dates: start: 20080320
  17. INVEGA [Suspect]
     Active Substance: PALIPERIDONE
     Indication: ATTENTION DEFICIT/HYPERACTIVITY DISORDER
     Route: 048
     Dates: start: 20080320
  18. RISPERDAL [Suspect]
     Active Substance: RISPERIDONE
     Indication: AGGRESSION
     Dosage: 0.25 MG - 1 MG
     Route: 048
     Dates: start: 200205, end: 200809
  19. RISPERDAL [Suspect]
     Active Substance: RISPERIDONE
     Indication: IMPULSIVE BEHAVIOUR
     Dosage: 0.25 MG - 1 MG
     Route: 048
     Dates: start: 20030208
  20. RISPERDAL [Suspect]
     Active Substance: RISPERIDONE
     Indication: IMPULSIVE BEHAVIOUR
     Dosage: 0.25 MG - 1 MG
     Route: 048
     Dates: start: 20040905, end: 20050128
  21. RISPERDAL [Suspect]
     Active Substance: RISPERIDONE
     Indication: AFFECTIVE DISORDER
     Dosage: 0.25 MG - 1 MG
     Route: 048
     Dates: start: 20020528, end: 20021212
  22. RISPERDAL [Suspect]
     Active Substance: RISPERIDONE
     Indication: PSYCHOMOTOR HYPERACTIVITY
     Dosage: 0.25 MG - 1 MG
     Route: 048
     Dates: start: 20030208
  23. RISPERDAL [Suspect]
     Active Substance: RISPERIDONE
     Indication: ATTENTION DEFICIT/HYPERACTIVITY DISORDER
     Dosage: 0.25 MG - 1 MG
     Route: 048
     Dates: start: 20030208
  24. RISPERDAL [Suspect]
     Active Substance: RISPERIDONE
     Indication: BIPOLAR DISORDER
     Dosage: 0.25 MG - 1 MG
     Route: 048
     Dates: start: 20020511, end: 20040905
  25. RISPERDAL [Suspect]
     Active Substance: RISPERIDONE
     Indication: BIPOLAR DISORDER
     Dosage: 0.25 MG - 1 MG
     Route: 048
     Dates: start: 20020528, end: 20021212
  26. RISPERDAL [Suspect]
     Active Substance: RISPERIDONE
     Indication: BIPOLAR DISORDER
     Dosage: 0.25 MG - 1 MG
     Route: 048
     Dates: start: 200205, end: 200809
  27. INVEGA [Suspect]
     Active Substance: PALIPERIDONE
     Indication: AFFECTIVE DISORDER
     Route: 048
     Dates: start: 20080320
  28. RISPERDAL [Suspect]
     Active Substance: RISPERIDONE
     Indication: AGGRESSION
     Dosage: 0.25 MG - 1 MG
     Route: 048
     Dates: start: 20030208
  29. RISPERDAL [Suspect]
     Active Substance: RISPERIDONE
     Indication: AFFECTIVE DISORDER
     Dosage: 0.25 MG - 1 MG
     Route: 048
     Dates: start: 200205, end: 200809
  30. RISPERDAL [Suspect]
     Active Substance: RISPERIDONE
     Indication: GENERALISED ANXIETY DISORDER
     Dosage: 0.25 MG - 1 MG
     Route: 048
     Dates: start: 20020511, end: 20040905
  31. RISPERDAL [Suspect]
     Active Substance: RISPERIDONE
     Indication: GENERALISED ANXIETY DISORDER
     Dosage: 0.25 MG - 1 MG
     Route: 048
     Dates: start: 20050128, end: 20080915
  32. RISPERDAL [Suspect]
     Active Substance: RISPERIDONE
     Indication: BIPOLAR DISORDER
     Dosage: 0.25 MG - 1 MG
     Route: 048
     Dates: start: 20040905, end: 20050128
  33. ABILIFY [Suspect]
     Active Substance: ARIPIPRAZOLE
     Indication: PRODUCT USED FOR UNKNOWN INDICATION
     Route: 065
  34. RISPERDAL [Suspect]
     Active Substance: RISPERIDONE
     Indication: GENERALISED ANXIETY DISORDER
     Dosage: 0.25 MG - 1 MG
     Route: 048
     Dates: start: 20030208
  35. RISPERDAL [Suspect]
     Active Substance: RISPERIDONE
     Indication: ATTENTION DEFICIT/HYPERACTIVITY DISORDER
     Dosage: 0.25 MG - 1 MG
     Route: 048
     Dates: start: 20020528, end: 20021212
  36. RISPERDAL [Suspect]
     Active Substance: RISPERIDONE
     Indication: ATTENTION DEFICIT/HYPERACTIVITY DISORDER
     Dosage: 0.25 MG - 1 MG
     Route: 048
     Dates: start: 20020511, end: 20040905
  37. RISPERDAL [Suspect]
     Active Substance: RISPERIDONE
     Indication: ATTENTION DEFICIT/HYPERACTIVITY DISORDER
     Dosage: 0.25 MG - 1 MG
     Route: 048
     Dates: start: 20050128, end: 20080915
  38. RISPERDAL [Suspect]
     Active Substance: RISPERIDONE
     Indication: BIPOLAR DISORDER
     Dosage: 0.25 MG - 1 MG
     Route: 048
     Dates: start: 20030208
  39. RISPERDAL [Suspect]
     Active Substance: RISPERIDONE
     Indication: AGGRESSION
     Dosage: 0.25 MG - 1 MG
     Route: 048
     Dates: start: 20020528, end: 20021212
  40. RISPERDAL [Suspect]
     Active Substance: RISPERIDONE
     Indication: AGGRESSION
     Dosage: 0.25 MG - 1 MG
     Route: 048
     Dates: start: 20020511, end: 20040905
  41. RISPERDAL [Suspect]
     Active Substance: RISPERIDONE
     Indication: IMPULSIVE BEHAVIOUR
     Dosage: 0.25 MG - 1 MG
     Route: 048
     Dates: start: 200205, end: 200809
  42. RISPERDAL [Suspect]
     Active Substance: RISPERIDONE
     Indication: AFFECTIVE DISORDER
     Dosage: 0.25 MG - 1 MG
     Route: 048
     Dates: start: 20020511, end: 20040905
  43. INVEGA [Suspect]
     Active Substance: PALIPERIDONE
     Indication: PSYCHOMOTOR HYPERACTIVITY
     Route: 048
     Dates: start: 20080320
  44. RISPERDAL [Suspect]
     Active Substance: RISPERIDONE
     Indication: IMPULSIVE BEHAVIOUR
     Dosage: 0.25 MG - 1 MG
     Route: 048
     Dates: start: 20020511, end: 20040905
  45. RISPERDAL [Suspect]
     Active Substance: RISPERIDONE
     Indication: PSYCHOMOTOR HYPERACTIVITY
     Dosage: 0.25 MG - 1 MG
     Route: 048
     Dates: start: 20020511, end: 20040905
  46. RISPERDAL [Suspect]
     Active Substance: RISPERIDONE
     Indication: ATTENTION DEFICIT/HYPERACTIVITY DISORDER
     Dosage: 0.25 MG - 1 MG
     Route: 048
     Dates: start: 20040905, end: 20050128
  47. RISPERDAL [Suspect]
     Active Substance: RISPERIDONE
     Indication: ATTENTION DEFICIT/HYPERACTIVITY DISORDER
     Dosage: 0.25 MG - 1 MG
     Route: 048
     Dates: start: 200205, end: 200809
  48. INVEGA [Suspect]
     Active Substance: PALIPERIDONE
     Indication: BIPOLAR DISORDER
     Route: 048
     Dates: start: 20080320

REACTIONS (6)
  - Off label use [Unknown]
  - Gynaecomastia [Unknown]
  - Obesity [Unknown]
  - Obsessive-compulsive disorder [Unknown]
  - Tardive dyskinesia [Unknown]
  - Product use issue [Unknown]

NARRATIVE: CASE EVENT DATE: 20021120
